FAERS Safety Report 21907767 (Version 1)
Quarter: 2023Q1

REPORT INFORMATION
  Report Type: Spontaneous
  Country: DE (occurrence: DE)
  Receive Date: 20230125
  Receipt Date: 20230125
  Transmission Date: 20230418
  Serious: Yes (Hospitalization)
  Sender: FDA-Public Use
  Company Number: None

PATIENT
  Age: 35 Year
  Sex: Male
  Weight: 115 kg

DRUGS (2)
  1. TRALOKINUMAB [Suspect]
     Active Substance: TRALOKINUMAB
     Indication: Neurodermatitis
     Dates: start: 202205, end: 20221223
  2. DEVICE [Suspect]
     Active Substance: DEVICE
     Indication: Neurodermatitis

REACTIONS (4)
  - Pneumonia pneumococcal [Unknown]
  - General physical health deterioration [Unknown]
  - Pneumonia pneumococcal [Unknown]
  - General physical health deterioration [Unknown]

NARRATIVE: CASE EVENT DATE: 20230101
